FAERS Safety Report 12875695 (Version 1)
Quarter: 2016Q4

REPORT INFORMATION
  Report Type: Spontaneous
  Country: JP (occurrence: JP)
  Receive Date: 20161024
  Receipt Date: 20161024
  Transmission Date: 20170207
  Serious: Yes (Other)
  Sender: FDA-Public Use
  Company Number: JP-ASTRAZENECA-2016SF11405

PATIENT
  Age: 29 Year
  Sex: Female
  Weight: 69 kg

DRUGS (6)
  1. ANTIPARKINSONIAN [Concomitant]
     Dosage: 1.0MG UNKNOWN
  2. SEROQUEL [Suspect]
     Active Substance: QUETIAPINE FUMARATE
     Indication: PRODUCT USED FOR UNKNOWN INDICATION
     Dosage: 1750.0MG UNKNOWN
     Route: 048
     Dates: start: 20161016, end: 20161016
  3. ANTIPSYCHOTICS [Concomitant]
     Active Substance: UNSPECIFIED INGREDIENT
  4. ANTIDEPRESSANTS [Concomitant]
     Active Substance: UNSPECIFIED INGREDIENT
  5. ANTIEPILEPTICS [Concomitant]
     Active Substance: UNSPECIFIED INGREDIENT
     Dosage: 0.5MG UNKNOWN
  6. HYPNOSIS SEDATIVE/ANTIANXIETY [Concomitant]

REACTIONS (3)
  - Somnolence [Unknown]
  - Suicide attempt [Unknown]
  - Intentional overdose [Unknown]
